FAERS Safety Report 5599780-1 (Version None)
Quarter: 2008Q1

REPORT INFORMATION
  Report Type: 
  Country: None (occurrence: None)
  Receive Date: 20080118
  Receipt Date: 20080118
  Transmission Date: 20080703
  Serious: Yes (Other)
  Sender: FDA-Public Use
  Company Number: None

PATIENT
  Sex: Male

DRUGS (9)
  1. REVLIMID [Suspect]
     Indication: MULTIPLE MYELOMA
     Dosage: 25MG DAILY 21D/28D PO
     Route: 048
  2. DEXAMETHASONE TAB [Concomitant]
  3. AREDIA [Concomitant]
  4. TERAZOSIN HCL [Concomitant]
  5. FLEXERIL [Concomitant]
  6. ATENOLOL [Concomitant]
  7. PLAVIX [Concomitant]
  8. HYDROMORPHONE HCL [Concomitant]
  9. ISORDIL [Concomitant]

REACTIONS (6)
  - DYSPNOEA [None]
  - EPISTAXIS [None]
  - HAEMOGLOBIN DECREASED [None]
  - PANCYTOPENIA [None]
  - PYREXIA [None]
  - WHITE BLOOD CELL COUNT DECREASED [None]
